FAERS Safety Report 12549134 (Version 1)
Quarter: 2016Q3

REPORT INFORMATION
  Report Type: Spontaneous
  Country: CH (occurrence: NL)
  Receive Date: 20160712
  Receipt Date: 20160712
  Transmission Date: 20161109
  Serious: Yes (Hospitalization)
  Sender: FDA-Public Use
  Company Number: CH-LPDUSPRD-20160587

PATIENT
  Sex: Female

DRUGS (1)
  1. FERINJECT [Suspect]
     Active Substance: FERRIC CARBOXYMALTOSE
     Dosage: 1000MG
     Route: 041
     Dates: start: 201605

REACTIONS (4)
  - Malaise [Unknown]
  - Pyrexia [Unknown]
  - Chills [Unknown]
  - Nasal congestion [Unknown]

NARRATIVE: CASE EVENT DATE: 201605
